FAERS Safety Report 25951285 (Version 2)
Quarter: 2025Q4

REPORT INFORMATION
  Report Type: Report from Study
  Country: TR (occurrence: TR)
  Receive Date: 20251023
  Receipt Date: 20251117
  Transmission Date: 20260117
  Serious: Yes (Hospitalization)
  Sender: ABBVIE
  Company Number: TR-ABBVIE-6511717

PATIENT
  Age: 61 Year
  Sex: Female

DRUGS (2)
  1. CARBIDOPA\LEVODOPA [Suspect]
     Active Substance: CARBIDOPA\LEVODOPA
     Indication: Parkinson^s disease
     Dosage: MORNING DOSE (ML): 5.00 CONTINUOUS DOSE (ML): 2.50 EXTRA DOSE (ML): 1.00
     Route: 050
     Dates: start: 20251015, end: 20251018
  2. CARBIDOPA\LEVODOPA [Suspect]
     Active Substance: CARBIDOPA\LEVODOPA
     Dosage: MORNING DOSE (ML): 5.00 CONTINUOUS DOSE (ML): 2.50 EXTRA DOSE (ML): 1.00
     Route: 050
     Dates: start: 20251113

REACTIONS (2)
  - Acute abdomen [Recovered/Resolved]
  - Abdominal pain upper [Recovered/Resolved]

NARRATIVE: CASE EVENT DATE: 20251018
